FAERS Safety Report 24860670 (Version 1)
Quarter: 2025Q1

REPORT INFORMATION
  Report Type: Spontaneous
  Country: US (occurrence: US)
  Receive Date: 20250120
  Receipt Date: 20250120
  Transmission Date: 20250409
  Serious: No
  Sender: CHATTEM
  Company Number: US-OPELLA-2025OHG001353

PATIENT
  Sex: Female

DRUGS (1)
  1. ALLEGRA ALLERGY [Suspect]
     Active Substance: FEXOFENADINE HYDROCHLORIDE
     Indication: Urticaria
     Route: 065

REACTIONS (2)
  - Abdominal pain upper [Unknown]
  - Wrong technique in product usage process [Unknown]
